FAERS Safety Report 9312171 (Version 1)
Quarter: 2013Q2

REPORT INFORMATION
  Report Type: Spontaneous
  Country: GB (occurrence: GB)
  Receive Date: 20130528
  Receipt Date: 20130528
  Transmission Date: 20140414
  Serious: Yes (Death)
  Sender: FDA-Public Use
  Company Number: GB-TEVA-407315ISR

PATIENT
  Age: 81 Year
  Sex: Female
  Weight: 105 kg

DRUGS (2)
  1. PREDNISOLONE [Suspect]
     Indication: PRODUCT USED FOR UNKNOWN INDICATION
     Dosage: DOSAGE FORM: UNSPECIFIED
     Route: 048
  2. STELARA [Suspect]
     Indication: PSORIASIS
     Dosage: DOSAGE FORM: LIQUID
     Route: 058
     Dates: start: 20110321

REACTIONS (3)
  - Acute left ventricular failure [Fatal]
  - Myocardial ischaemia [Fatal]
  - Psoriasis [Unknown]
